FAERS Safety Report 8021219-7 (Version None)
Quarter: 2011Q4

REPORT INFORMATION
  Report Type: 
  Country: None (occurrence: None)
  Receive Date: 20111230
  Receipt Date: 20111230
  Transmission Date: 20120403
  Serious: Yes (Hospitalization)
  Sender: FDA-Public Use
  Company Number: None

PATIENT
  Sex: Male
  Weight: 89.2 kg

DRUGS (6)
  1. PREDNISONE [Suspect]
     Dosage: 1250 MG
  2. RITUXIMAB (MOAB C2B8 ANTI CD20, CHIMERIC) [Suspect]
     Dosage: 780 MG
  3. DOXORUBICIN HCL [Suspect]
     Dosage: 119.2 MG
  4. ETOPOSIDE [Suspect]
     Dosage: 596 MG
  5. VINCRISTINE SULFATE [Suspect]
     Dosage: 1.64 MG
  6. CYCLOPHOSPHAMIDE [Suspect]
     Dosage: 2235 MG

REACTIONS (3)
  - WHITE BLOOD CELL COUNT DECREASED [None]
  - PYREXIA [None]
  - NEUTROPENIA [None]
